FAERS Safety Report 9501314 (Version 1)
Quarter: 2013Q1

REPORT INFORMATION
  Report Type: Spontaneous
  Country: US (occurrence: None)
  Receive Date: 20130122
  Receipt Date: 20130122
  Transmission Date: 20140127
  Serious: Yes (Hospitalization)
  Sender: FDA-Public Use
  Company Number: 1384094

PATIENT
  Age: 74 Year
  Sex: Male
  Weight: 120 kg

DRUGS (8)
  1. VANCOMYCIN HYDROCHLORIDE [Suspect]
     Indication: OSTEOMYELITIS
     Dosage: 1.5 G, Q12H, UNKNOWN, INTRAVENOUS (NOT OTHERWISE SPECIFIED)?
     Route: 042
     Dates: start: 20111223, end: 20120101
  2. ROCEPHIN [Suspect]
     Dosage: 1 G, 24H, UNKNOWN, INTRAVENOUS (NOT OTHERWISE SPECIFIED)?
     Route: 042
     Dates: start: 20111223, end: 20120109
  3. CUBICIN [Suspect]
     Route: 041
     Dates: start: 20120109
  4. INVANZ [Suspect]
     Route: 041
     Dates: start: 20120109
  5. METOPROLOL [Concomitant]
  6. CARDIZEM [Concomitant]
  7. NEURONTIN [Concomitant]
  8. SIMVASTATIN [Concomitant]

REACTIONS (2)
  - Renal failure acute [None]
  - Rash [None]
